FAERS Safety Report 6772118-X (Version None)
Quarter: 2010Q2

REPORT INFORMATION
  Report Type: 
  Country: None (occurrence: None)
  Receive Date: 20100616
  Receipt Date: 20100608
  Transmission Date: 20101027
  Serious: Yes (Hospitalization)
  Sender: FDA-Public Use
  Company Number: B0652781A

PATIENT
  Sex: Male

DRUGS (3)
  1. LAMICTAL [Suspect]
     Indication: EPILEPSY
     Dosage: 25MG PER DAY
     Route: 048
     Dates: start: 20100410, end: 20100427
  2. DEPAKENE [Concomitant]
     Indication: MOOD SWINGS
     Route: 048
     Dates: start: 20010101, end: 20100427
  3. LUVOX [Concomitant]
     Indication: DEPRESSION
     Dosage: 225MG PER DAY
     Route: 048
     Dates: start: 20040708, end: 20100429

REACTIONS (22)
  - ALANINE AMINOTRANSFERASE INCREASED [None]
  - ASPARTATE AMINOTRANSFERASE INCREASED [None]
  - BLOOD ALKALINE PHOSPHATASE INCREASED [None]
  - BLOOD BILIRUBIN INCREASED [None]
  - BLOOD CREATINE PHOSPHOKINASE INCREASED [None]
  - BLOOD CREATININE INCREASED [None]
  - BLOOD UREA INCREASED [None]
  - CONJUNCTIVAL DISCOLOURATION [None]
  - ERYTHEMA MULTIFORME [None]
  - HAEMOGLOBIN DECREASED [None]
  - HYPOPHAGIA [None]
  - MUCOSAL EROSION [None]
  - OROPHARYNGEAL BLISTERING [None]
  - OROPHARYNGEAL PAIN [None]
  - PLATELET COUNT DECREASED [None]
  - PYREXIA [None]
  - RASH [None]
  - RASH VESICULAR [None]
  - RED BLOOD CELL COUNT DECREASED [None]
  - STEVENS-JOHNSON SYNDROME [None]
  - UPPER RESPIRATORY TRACT INFLAMMATION [None]
  - WHITE BLOOD CELL COUNT INCREASED [None]
